FAERS Safety Report 7101859-X (Version None)
Quarter: 2010Q4

REPORT INFORMATION
  Report Type: 
  Country: None (occurrence: None)
  Receive Date: 20101109
  Receipt Date: 20101026
  Transmission Date: 20110411
  Serious: Yes (Other)
  Sender: FDA-Public Use
  Company Number: US-1183867

PATIENT
  Age: 97 Year
  Sex: Female
  Weight: 52.6173 kg

DRUGS (6)
  1. SYSTANE EYE DROPS [Suspect]
     Indication: CORNEAL DISORDER
     Dosage: (6 TIMES DAY OPHTHALMIC) ; (6 TIMES A DAY OPHTHALMIC)
     Route: 047
     Dates: start: 20100911, end: 20100901
  2. SYSTANE EYE DROPS [Suspect]
     Indication: DRY EYE
     Dosage: (6 TIMES DAY OPHTHALMIC) ; (6 TIMES A DAY OPHTHALMIC)
     Route: 047
     Dates: start: 20100911, end: 20100901
  3. SYSTANE EYE DROPS [Suspect]
     Indication: PUNCTATE KERATITIS
     Dosage: (6 TIMES DAY OPHTHALMIC) ; (6 TIMES A DAY OPHTHALMIC)
     Route: 047
     Dates: start: 20100911, end: 20100901
  4. SYSTANE EYE DROPS [Suspect]
     Indication: CORNEAL DISORDER
     Dosage: (6 TIMES DAY OPHTHALMIC) ; (6 TIMES A DAY OPHTHALMIC)
     Route: 047
     Dates: start: 20100901, end: 20101001
  5. SYSTANE EYE DROPS [Suspect]
     Indication: DRY EYE
     Dosage: (6 TIMES DAY OPHTHALMIC) ; (6 TIMES A DAY OPHTHALMIC)
     Route: 047
     Dates: start: 20100901, end: 20101001
  6. SYSTANE EYE DROPS [Suspect]
     Indication: PUNCTATE KERATITIS
     Dosage: (6 TIMES DAY OPHTHALMIC) ; (6 TIMES A DAY OPHTHALMIC)
     Route: 047
     Dates: start: 20100901, end: 20101001

REACTIONS (3)
  - EYE IRRITATION [None]
  - PHOTOPHOBIA [None]
  - VISUAL ACUITY REDUCED [None]
